FAERS Safety Report 7757169-0 (Version None)
Quarter: 2011Q3

REPORT INFORMATION
  Report Type: 
  Country: None (occurrence: None)
  Receive Date: 20110916
  Receipt Date: 20110902
  Transmission Date: 20111222
  Serious: Yes (Hospitalization)
  Sender: FDA-Public Use
  Company Number: PHHY2011JP77695

PATIENT
  Age: 76 Year
  Sex: Female

DRUGS (18)
  1. NEUROTROPIN [Concomitant]
     Dosage: 8 IU, UNK
     Route: 048
     Dates: start: 20110825
  2. RETICOLAN [Concomitant]
     Dosage: 750 MG, UNK
     Route: 048
     Dates: end: 20110825
  3. ROCALTROL [Concomitant]
     Dosage: 0.5 MG, UNK
     Route: 048
     Dates: end: 20110824
  4. ANTI-PARKINSON AGENTS [Concomitant]
     Dosage: 80 MG, UNK
     Route: 048
     Dates: start: 20110825
  5. DIOVAN HCT [Suspect]
     Dosage: 0.5 DF, UNK
     Route: 048
     Dates: start: 20110825
  6. MUCOSTA [Concomitant]
     Dosage: 100 MG, UNK
     Route: 048
     Dates: end: 20110824
  7. MUCOSTA [Concomitant]
     Dosage: 100 MG, UNK
     Route: 048
     Dates: start: 20110825
  8. RINPRAL [Concomitant]
     Dosage: 150 MG, UNK
     Route: 048
     Dates: end: 20110824
  9. ASPARA-CA [Concomitant]
     Dosage: 500 MG, UNK
     Route: 048
     Dates: end: 20110824
  10. SENNOSIDE [Concomitant]
     Dosage: 36 MG, UNK
     Route: 048
     Dates: start: 20110825
  11. DIOVAN HCT [Suspect]
     Indication: HYPERTENSION
     Dosage: 0.5 DF, UNK
     Route: 048
     Dates: end: 20110824
  12. NEUROTROPIN [Concomitant]
     Dosage: 8 IU, UNK
     Route: 048
     Dates: end: 20110824
  13. ROCALTROL [Concomitant]
     Dosage: 0.5 MG, UNK
     Route: 048
     Dates: start: 20110825
  14. ANTI-PARKINSON AGENTS [Concomitant]
     Indication: PARKINSON'S DISEASE
     Dosage: 80 MG, UNK
     Route: 048
     Dates: end: 20110824
  15. RINPRAL [Concomitant]
     Dosage: 150 MG, UNK
     Route: 048
     Dates: start: 20110825
  16. ASPARA-CA [Concomitant]
     Dosage: 500 MG, UNK
     Route: 048
     Dates: start: 20110825
  17. RETICOLAN [Concomitant]
     Dosage: 750 MG, UNK
     Route: 048
     Dates: start: 20110824
  18. SENNOSIDE [Concomitant]
     Dosage: 36 MG, UNK
     Route: 048
     Dates: end: 20110824

REACTIONS (2)
  - FEMORAL NECK FRACTURE [None]
  - BRADYCARDIA [None]
